FAERS Safety Report 12485058 (Version 1)
Quarter: 2016Q2

REPORT INFORMATION
  Report Type: Spontaneous
  Country: US (occurrence: US)
  Receive Date: 20160621
  Receipt Date: 20160621
  Transmission Date: 20160815
  Serious: Yes (Life-Threatening, Other)
  Sender: FDA-Public Use
  Company Number: US-BAYER-2016-115560

PATIENT
  Age: 75 Year
  Sex: Female

DRUGS (3)
  1. ACETAMINOPHEN. [Suspect]
     Active Substance: ACETAMINOPHEN
  2. ACETYLSALICYLIC ACID({=100 MG) [Suspect]
     Active Substance: ASPIRIN
  3. CAFFEINE. [Suspect]
     Active Substance: CAFFEINE

REACTIONS (5)
  - Pyloric stenosis [None]
  - Oesophageal mucosal dissection [None]
  - Peptic ulcer [None]
  - Oesophagitis [None]
  - Product use issue [None]
